FAERS Safety Report 15931262 (Version 1)
Quarter: 2019Q1

REPORT INFORMATION
  Report Type: Spontaneous
  Country: GB (occurrence: GB)
  Receive Date: 20190207
  Receipt Date: 20190207
  Transmission Date: 20190417
  Serious: Yes (Other)
  Sender: FDA-Public Use
  Company Number: GB-AUROBINDO-AUR-APL-2019-006126

PATIENT

DRUGS (3)
  1. ECONAZOLE. [Concomitant]
     Active Substance: ECONAZOLE NITRATE
     Indication: PRODUCT USED FOR UNKNOWN INDICATION
     Dosage: UNK
     Route: 065
  2. VAGIFEM [Concomitant]
     Active Substance: ESTRADIOL
     Indication: PRODUCT USED FOR UNKNOWN INDICATION
     Dosage: UNK
     Route: 065
  3. FLUCONAZOLE. [Suspect]
     Active Substance: FLUCONAZOLE
     Indication: VULVOVAGINAL CANDIDIASIS
     Dosage: 150 MILLIGRAM, TOTAL
     Route: 048
     Dates: start: 20181231, end: 20181231

REACTIONS (4)
  - Dyspnoea [Recovered/Resolved with Sequelae]
  - Vaginal discharge [Unknown]
  - Urticaria [Recovered/Resolved with Sequelae]
  - Flushing [Unknown]

NARRATIVE: CASE EVENT DATE: 20181231
